FAERS Safety Report 4470942-X (Version None)
Quarter: 2004Q4

REPORT INFORMATION
  Report Type: 
  Country: None (occurrence: None)
  Receive Date: 20041011
  Receipt Date: 20040930
  Transmission Date: 20050328
  Serious: Yes (Death, Hospitalization)
  Sender: FDA-Public Use
  Company Number: DE-MERCK-0410DEU00002

PATIENT
  Age: 92 Year
  Sex: Male
  Weight: 72 kg

DRUGS (3)
  1. FUROSEMIDE [Concomitant]
     Indication: OEDEMA
     Route: 048
     Dates: end: 20040404
  2. PREDNISOLONE [Concomitant]
     Indication: BRONCHITIS CHRONIC
     Route: 048
     Dates: end: 20040404
  3. VIOXX [Suspect]
     Indication: LOCALISED OSTEOARTHRITIS
     Route: 048
     Dates: start: 20030101, end: 20040404

REACTIONS (5)
  - CARDIAC FAILURE [None]
  - CEREBRAL INFARCTION [None]
  - PNEUMONIA [None]
  - TACHYARRHYTHMIA [None]
  - UPPER GASTROINTESTINAL HAEMORRHAGE [None]
